FAERS Safety Report 21604645 (Version 1)
Quarter: 2022Q4

REPORT INFORMATION
  Report Type: Report from Study
  Country: DE (occurrence: DE)
  Receive Date: 20221116
  Receipt Date: 20221116
  Transmission Date: 20230112
  Serious: Yes (Hospitalization)
  Sender: FDA-Public Use
  Company Number: DE-EMA-DD-20221027-7180171-103443

PATIENT
  Sex: Female

DRUGS (22)
  1. METHOTREXATE [Suspect]
     Active Substance: METHOTREXATE
     Indication: Rheumatoid arthritis
     Dosage: 15 MG (15 MILLIGRAM),
     Route: 065
     Dates: start: 20111011
  2. METHOTREXATE [Suspect]
     Active Substance: METHOTREXATE
     Dosage: 15 MG (15 MILLIGRAM
     Route: 065
     Dates: start: 20161004
  3. METHOTREXATE [Suspect]
     Active Substance: METHOTREXATE
     Dosage: 15 MG (15 MILLIGRAM),
     Route: 065
     Dates: start: 20181023
  4. METHOTREXATE [Suspect]
     Active Substance: METHOTREXATE
     Dosage: 15 MG (15 MILLIGRAM),
     Route: 065
     Dates: start: 20130523
  5. METHOTREXATE [Suspect]
     Active Substance: METHOTREXATE
     Dosage: 15 MG (15 MILLIGRAM)
     Route: 065
     Dates: start: 20131016
  6. METHOTREXATE [Suspect]
     Active Substance: METHOTREXATE
     Dosage: 15 MG (15 MILLIGRAM)
     Route: 065
     Dates: start: 20160412
  7. METHOTREXATE [Suspect]
     Active Substance: METHOTREXATE
     Dosage: 15 MG (15 MILLIGRAM)
     Route: 065
     Dates: start: 20120117
  8. METHOTREXATE [Suspect]
     Active Substance: METHOTREXATE
     Dosage: 15 MG (15 MILLIGRAM),
     Route: 065
     Dates: start: 20170510
  9. METHOTREXATE [Suspect]
     Active Substance: METHOTREXATE
     Dosage: 15 MG (15 MILLIGRAM)
     Route: 065
     Dates: start: 20150401
  10. METHOTREXATE [Suspect]
     Active Substance: METHOTREXATE
     Dosage: 15 MG (15 MILLIGRAM)
     Route: 065
     Dates: start: 20120504
  11. METHOTREXATE [Suspect]
     Active Substance: METHOTREXATE
     Dosage: 15 MG (15 MILLIGRAM)
     Route: 065
     Dates: start: 20190510
  12. METHOTREXATE [Suspect]
     Active Substance: METHOTREXATE
     Dosage: 15 MG (15 MILLIGRAM)
     Route: 065
     Dates: start: 20151007
  13. METHOTREXATE [Suspect]
     Active Substance: METHOTREXATE
     Dosage: 15 MG (15 MILLIGRAM)
     Route: 065
     Dates: start: 20121109
  14. METHOTREXATE [Suspect]
     Active Substance: METHOTREXATE
     Dosage: 15 MG (15 MILLIGRAM)
     Route: 065
     Dates: start: 20140409
  15. METHOTREXATE [Suspect]
     Active Substance: METHOTREXATE
     Dosage: 15 MG (15 MILLIGRAM
     Route: 065
     Dates: start: 20141001
  16. METHOTREXATE [Suspect]
     Active Substance: METHOTREXATE
     Dosage: 15 MG (15 MILLIGRAM)
     Route: 065
     Dates: start: 20191105
  17. METHOTREXATE [Suspect]
     Active Substance: METHOTREXATE
     Dosage: 15 MG (15 MILLIGRAM)
     Route: 065
     Dates: start: 20171107
  18. METHOTREXATE [Suspect]
     Active Substance: METHOTREXATE
     Dosage: 15 MG (15 MILLIGRAM)
     Route: 065
     Dates: start: 20180502
  19. HYRIMOZ [Suspect]
     Active Substance: ADALIMUMAB-ADAZ
     Indication: Rheumatoid arthritis
     Dosage: 40 MG, Q2W EVERY 14 DAYS, THERAPY START DATE : ASKU
     Dates: end: 20210521
  20. HYRIMOZ [Suspect]
     Active Substance: ADALIMUMAB-ADAZ
     Dosage: 40 MG (40 MILLIGRAM), ROUTE OF ADMINISTRATION : UNKNOWN .DURATION : 4 MONTHS
     Route: 065
     Dates: start: 201905, end: 201909
  21. HYRIMOZ [Suspect]
     Active Substance: ADALIMUMAB-ADAZ
     Dosage: 40 MG (40 MILLIGRAM), ROUTE OF ADMINISTRATION : UNKNOWN .THERAPY END DATE : ASKU
     Route: 065
     Dates: start: 202005
  22. HUMIRA [Suspect]
     Active Substance: ADALIMUMAB
     Indication: Rheumatoid arthritis
     Dosage: 40 MILLIGRAM.DURATION : 7 YEARS
     Route: 065
     Dates: start: 201110, end: 201905

REACTIONS (2)
  - Rheumatoid arthritis [Not Recovered/Not Resolved]
  - Hip arthroplasty [Recovered/Resolved]

NARRATIVE: CASE EVENT DATE: 20200204
